FAERS Safety Report 13278601 (Version 2)
Quarter: 2017Q2

REPORT INFORMATION
  Report Type: Spontaneous
  Country: US (occurrence: US)
  Receive Date: 20170228
  Receipt Date: 20170424
  Transmission Date: 20170830
  Serious: Yes (Hospitalization, Other)
  Sender: FDA-Public Use
  Company Number: US-TEVA-743233USA

PATIENT
  Sex: Female

DRUGS (1)
  1. QNASL [Suspect]
     Active Substance: BECLOMETHASONE DIPROPIONATE
     Route: 065

REACTIONS (2)
  - Spinal operation [Not Recovered/Not Resolved]
  - Hip arthroplasty [Not Recovered/Not Resolved]

NARRATIVE: CASE EVENT DATE: 2017
